FAERS Safety Report 8410058-0 (Version None)
Quarter: 2012Q2

REPORT INFORMATION
  Report Type: 
  Country: None (occurrence: None)
  Receive Date: 20120605
  Receipt Date: 20120529
  Transmission Date: 20120825
  Serious: Yes (Life-Threatening, Hospitalization, Other)
  Sender: FDA-Public Use
  Company Number: US-BAYER-2011-123379

PATIENT
  Age: 22 Year
  Sex: Female
  Weight: 47.619 kg

DRUGS (13)
  1. IBUPROFEN [Concomitant]
     Indication: PAIN
     Dosage: AS NEEDED
     Route: 048
     Dates: start: 20110131
  2. YASMIN [Suspect]
     Indication: MENSTRUAL CYCLE MANAGEMENT
  3. CLINDAMYCIN PHOSPHATE [Concomitant]
     Indication: ACNE
     Dosage: UNK UNK, BID
     Route: 061
  4. TRAMADOL HCL [Concomitant]
     Dosage: 50 MG, UNK
     Route: 048
     Dates: start: 20110131
  5. PHENERGAN [Concomitant]
     Indication: NAUSEA
     Dosage: 25 MG,EVERY 4 TO 6 HOURS AS NEEDED
     Dates: start: 20110201
  6. YASMIN [Suspect]
     Indication: PREMENSTRUAL SYNDROME
  7. PLAVIX [Concomitant]
     Dosage: UNK
  8. MORPHINE [Concomitant]
     Dosage: UNK
     Route: 042
  9. YASMIN [Suspect]
     Indication: HORMONE THERAPY
  10. YASMIN [Suspect]
     Indication: MENORRHAGIA
  11. PERCOCET [Concomitant]
     Dosage: UNK
  12. DILAUDID [Concomitant]
     Dosage: UNK
  13. YASMIN [Suspect]
     Indication: ACNE
     Dosage: UNK
     Dates: start: 20100101, end: 20110101

REACTIONS (8)
  - PAIN [None]
  - ANXIETY [None]
  - DEEP VEIN THROMBOSIS [None]
  - PULMONARY EMBOLISM [None]
  - POST THROMBOTIC SYNDROME [None]
  - ANHEDONIA [None]
  - FEAR [None]
  - EMOTIONAL DISORDER [None]
